FAERS Safety Report 19014807 (Version 1)
Quarter: 2021Q1

REPORT INFORMATION
  Report Type: Spontaneous
  Country: ES (occurrence: ES)
  Receive Date: 20210316
  Receipt Date: 20210316
  Transmission Date: 20210420
  Serious: Yes (Other)
  Sender: FDA-Public Use
  Company Number: ES-PFIZER INC-2021250160

PATIENT
  Age: 53 Year
  Sex: Male

DRUGS (1)
  1. METHOTREXATE SODIUM. [Suspect]
     Active Substance: METHOTREXATE SODIUM
     Route: 048
     Dates: start: 20210119, end: 20210202

REACTIONS (6)
  - Neutropenia [Recovered/Resolved]
  - Odynophagia [Recovered/Resolved]
  - Wrong schedule [Recovered/Resolved]
  - Mucosal inflammation [Recovered/Resolved]
  - Skin ulcer [Recovered/Resolved]
  - Hypertransaminasaemia [Recovered/Resolved]

NARRATIVE: CASE EVENT DATE: 20210202
